FAERS Safety Report 14327846 (Version 2)
Quarter: 2018Q1

REPORT INFORMATION
  Report Type: Spontaneous
  Country: GB (occurrence: GB)
  Receive Date: 20171227
  Receipt Date: 20180131
  Transmission Date: 20180509
  Serious: Yes (Death, Hospitalization, Other)
  Sender: FDA-Public Use
  Company Number: GB-TEVA-2017-GB-836627

PATIENT
  Age: 84 Year
  Weight: 98 kg

DRUGS (16)
  1. FINASTERIDE. [Concomitant]
     Active Substance: FINASTERIDE
  2. FUROSEMIDE. [Concomitant]
     Active Substance: FUROSEMIDE
  3. ADALAT CC [Concomitant]
     Active Substance: NIFEDIPINE
  4. LISINOPRIL. [Concomitant]
     Active Substance: LISINOPRIL
  5. TRAMADOL. [Concomitant]
     Active Substance: TRAMADOL
  6. ACETYLSALICYLIC ACID [Suspect]
     Active Substance: ASPIRIN
     Indication: PROPHYLAXIS
     Route: 048
  7. ATORVASTATIN [Concomitant]
     Active Substance: ATORVASTATIN
  8. PARACETAMOL [Concomitant]
     Active Substance: ACETAMINOPHEN
     Route: 065
  9. CLOPIDOGREL [Suspect]
     Active Substance: CLOPIDOGREL BISULFATE
     Indication: PROPHYLAXIS
     Route: 048
     Dates: start: 201706
  10. XARELTO [Suspect]
     Active Substance: RIVAROXABAN
     Indication: ATRIAL FIBRILLATION
     Route: 048
  11. ISOSORBIDE MONONITRATE. [Concomitant]
     Active Substance: ISOSORBIDE MONONITRATE
  12. FOLIC ACID. [Concomitant]
     Active Substance: FOLIC ACID
  13. NOVOMIX [Concomitant]
     Active Substance: INSULIN ASPART
  14. BISOPROLOL [Concomitant]
     Active Substance: BISOPROLOL
  15. LANSOPRAZOLE. [Concomitant]
     Active Substance: LANSOPRAZOLE
  16. FERROUS FUMARATE [Concomitant]
     Active Substance: FERROUS FUMARATE

REACTIONS (4)
  - Agitation [Unknown]
  - Acute kidney injury [Not Recovered/Not Resolved]
  - Subdural haemorrhage [Fatal]
  - Confusional state [Unknown]

NARRATIVE: CASE EVENT DATE: 201711
